FAERS Safety Report 9324766 (Version 1)
Quarter: 2013Q2

REPORT INFORMATION
  Report Type: Spontaneous
  Country: US (occurrence: US)
  Receive Date: 20130603
  Receipt Date: 20130603
  Transmission Date: 20140414
  Serious: No
  Sender: FDA-Public Use
  Company Number: US-009507513-1305USA017747

PATIENT
  Age: 7 Year
  Sex: Male

DRUGS (2)
  1. CLARITIN ORAL SOLUTION [Suspect]
     Indication: HYPERSENSITIVITY
     Dosage: 7.5 MG, HS
     Route: 048
     Dates: start: 20130520
  2. CLARITIN ORAL SOLUTION [Suspect]
     Dosage: 7.5 MG, QAM
     Route: 048
     Dates: start: 20130521

REACTIONS (1)
  - Accidental overdose [Unknown]
